FAERS Safety Report 7842202-8 (Version None)
Quarter: 2011Q4

REPORT INFORMATION
  Report Type: 
  Country: None (occurrence: None)
  Receive Date: 20111024
  Receipt Date: 20111024
  Transmission Date: 20120403
  Serious: Yes (Other)
  Sender: FDA-Public Use
  Company Number: None

PATIENT
  Age: 78 Year
  Sex: Female
  Weight: 79.3795 kg

DRUGS (1)
  1. AMANTADINE HCL [Suspect]
     Indication: PARKINSON'S DISEASE
     Dosage: 100 MG CAPSULE 1X DAY MOUTH
     Route: 048
     Dates: start: 20110601, end: 20110910

REACTIONS (5)
  - INSOMNIA [None]
  - CONDITION AGGRAVATED [None]
  - GAMBLING [None]
  - LIBIDO INCREASED [None]
  - DRUG INEFFECTIVE [None]
